FAERS Safety Report 9382091 (Version 3)
Quarter: 2013Q3

REPORT INFORMATION
  Report Type: Spontaneous
  Country: JP (occurrence: JP)
  Receive Date: 20130703
  Receipt Date: 20130807
  Transmission Date: 20140515
  Serious: Yes (Hospitalization)
  Sender: FDA-Public Use
  Company Number: JP-ELI_LILLY_AND_COMPANY-JP201306009062

PATIENT
  Age: 74 Year
  Sex: Male

DRUGS (8)
  1. ZYPREXA [Suspect]
     Indication: VOMITING
     Dosage: 5 MG, UNK
     Route: 048
     Dates: start: 20120917, end: 20120920
  2. ZYPREXA [Suspect]
     Indication: NAUSEA
  3. ALIMTA [Suspect]
     Indication: LUNG ADENOCARCINOMA RECURRENT
     Dosage: 765 MG, UNK
     Route: 042
     Dates: start: 20120820
  4. CISPLATIN [Concomitant]
     Indication: LUNG ADENOCARCINOMA RECURRENT
     Dosage: 114 MG, UNK
     Route: 042
     Dates: start: 20120820
  5. PANVITAN [Concomitant]
     Dosage: 1 G, UNK
     Route: 048
     Dates: start: 20120816
  6. VITAMIN B12 [Concomitant]
     Dosage: 1 MG, UNK
     Route: 030
     Dates: start: 20120806
  7. ETIZOLAM [Concomitant]
     Dosage: 0.5 MG, UNK
     Route: 048
     Dates: end: 20120917
  8. QUETIAPINE [Concomitant]
     Dosage: 25 MG, UNK
     Route: 048
     Dates: start: 20120919, end: 20120919

REACTIONS (7)
  - Delirium [Recovered/Resolved]
  - Convulsion [Recovered/Resolved]
  - Depressed level of consciousness [Recovered/Resolved]
  - Insomnia [Recovered/Resolved]
  - Nausea [Recovered/Resolved]
  - Vomiting [Recovered/Resolved]
  - Off label use [Unknown]
